FAERS Safety Report 5237719-9 (Version None)
Quarter: 2007Q1

REPORT INFORMATION
  Report Type: 
  Country: None (occurrence: None)
  Receive Date: 20070214
  Receipt Date: 20070209
  Transmission Date: 20070707
  Serious: Yes (Death)
  Sender: FDA-Public Use
  Company Number: 2007UW00777

PATIENT
  Age: 48 Year
  Sex: Female

DRUGS (17)
  1. IRESSA [Suspect]
     Indication: SQUAMOUS CELL CARCINOMA OF SKIN
     Route: 048
     Dates: start: 20060928, end: 20070103
  2. NIFEDICAL [Concomitant]
     Indication: HYPERTENSION
     Dates: start: 20060201
  3. FENTANYL [Concomitant]
     Indication: PAIN
     Route: 061
     Dates: start: 20060211
  4. AMBIEN [Concomitant]
     Indication: INSOMNIA
     Dates: start: 20030101
  5. REGLAN [Concomitant]
     Dosage: 5 MG 4 TIMES A DAY
     Dates: start: 20060901
  6. FLUOXETINE [Concomitant]
     Indication: DEPRESSION
     Dates: start: 19980101
  7. OMACOR [Concomitant]
     Indication: BLOOD CHOLESTEROL INCREASED
     Dosage: 1 GM 2 X DAILY
  8. SENOKOT [Concomitant]
     Indication: CONSTIPATION
     Dosage: 10 TABLETS DAILY
     Dates: start: 20060927
  9. METOLAZONE [Concomitant]
     Indication: HYPERTENSION
     Dates: start: 20050901
  10. DEPAKOTE [Concomitant]
     Dates: start: 20000101
  11. OXYCODONE [Concomitant]
     Indication: PAIN
     Dates: start: 20061014
  12. PLAVIX [Concomitant]
     Dates: start: 20050201
  13. NITROSTAT [Concomitant]
     Indication: CHEST PAIN
     Dosage: 0.4 MG 1 TO 3 TABLETS
     Dates: start: 20060201
  14. NEXIUM [Concomitant]
     Route: 048
     Dates: start: 20050901
  15. LASIX [Concomitant]
     Dates: start: 19980101
  16. CARDIZEM [Concomitant]
     Indication: HYPERTENSION
     Dates: start: 20060201
  17. MEGACE [Concomitant]
     Dates: start: 20061208

REACTIONS (1)
  - CORONARY ARTERY OCCLUSION [None]
